FAERS Safety Report 8773499 (Version 3)
Quarter: 2012Q4

REPORT INFORMATION
  Report Type: 
  Country: US (occurrence: US)
  Receive Date: 20120907
  Receipt Date: 20121228
  Transmission Date: 20130627
  Serious: Yes (Death, Life-Threatening, Disabling, Other)
  Sender: FDA-Public Use
  Company Number: US-GLAXOSMITHKLINE-A0992234A

PATIENT
  Age: 82 Year
  Sex: Male

DRUGS (9)
  1. VOTRIENT [Suspect]
     Indication: RENAL CANCER
     Dosage: 200MG See dosage text
     Route: 048
     Dates: start: 20120209
  2. OXYCODONE [Concomitant]
  3. COMPAZINE [Concomitant]
  4. ALEVE [Concomitant]
  5. ASPIRIN [Concomitant]
  6. COZAAR [Concomitant]
  7. MULTIVITAMIN [Concomitant]
  8. IRON [Concomitant]
  9. VERAPAMIL [Concomitant]

REACTIONS (7)
  - Renal cancer [Fatal]
  - Myocardial infarction [Unknown]
  - Melaena [Unknown]
  - Toxicity to various agents [Unknown]
  - Fatigue [Unknown]
  - Weight decreased [Unknown]
  - Drug ineffective [Unknown]
